FAERS Safety Report 7809527-3 (Version None)
Quarter: 2011Q4

REPORT INFORMATION
  Report Type: 
  Country: None (occurrence: None)
  Receive Date: 20111012
  Receipt Date: 20111001
  Transmission Date: 20120403
  Serious: Yes (Other)
  Sender: FDA-Public Use
  Company Number: PHHY2011DE88768

PATIENT
  Age: 71 Year
  Sex: Female

DRUGS (1)
  1. FEMARA [Suspect]
     Indication: BREAST CANCER
     Route: 048
     Dates: start: 20100201, end: 20100501

REACTIONS (6)
  - JOINT SWELLING [None]
  - MOVEMENT DISORDER [None]
  - RHEUMATOID ARTHRITIS [None]
  - PAIN [None]
  - INFLAMMATION [None]
  - OEDEMA PERIPHERAL [None]
